FAERS Safety Report 6687632-5 (Version None)
Quarter: 2010Q2

REPORT INFORMATION
  Report Type: 
  Country: None (occurrence: None)
  Receive Date: 20100415
  Receipt Date: 20100401
  Transmission Date: 20101027
  Serious: Yes (Other)
  Sender: FDA-Public Use
  Company Number: FKO201000118

PATIENT
  Age: 45 Year
  Sex: Female

DRUGS (4)
  1. CYCLOPHOSPHAMIDE [Suspect]
     Indication: BREAST CANCER
     Dosage: (500 MG/M2, 2 X IN 4 WEEKS)
  2. EPIRUBICIN [Suspect]
     Indication: BREAST CANCER
     Dosage: (50 MG/M2, 2 X IN 4 WEEKS)
  3. FLUOROURACIL [Suspect]
     Indication: BREAST CANCER
     Dosage: (500 MG/M2, 2 X IN 4 WEEKS)
  4. TAMOXIFEN CITRATE [Suspect]
     Indication: BREAST CANCER
     Dosage: (20 MG (20 MG, 1 IN 1 D)

REACTIONS (11)
  - ANAEMIA [None]
  - ASTHENIA [None]
  - BLOOD LACTATE DEHYDROGENASE INCREASED [None]
  - BREAST CANCER METASTATIC [None]
  - HEPATOMEGALY [None]
  - JOINT SWELLING [None]
  - LOCAL SWELLING [None]
  - METASTASES TO LUNG [None]
  - METASTASES TO LYMPH NODES [None]
  - METASTASES TO THE MEDIASTINUM [None]
  - T-CELL PROLYMPHOCYTIC LEUKAEMIA [None]
